FAERS Safety Report 8392130 (Version 5)
Quarter: 2012Q4

REPORT INFORMATION
  Report Type: 
  Country: FR (occurrence: FR)
  Receive Date: 20120206
  Receipt Date: 20121126
  Transmission Date: 20130627
  Serious: Yes (Death)
  Sender: FDA-Public Use
  Company Number: FR-GLAXOSMITHKLINE-B0778032A

PATIENT
  Age: 66 Year
  Sex: Female
  Weight: 56 kg

DRUGS (21)
  1. ARIXTRA [Suspect]
     Indication: ATRIAL FIBRILLATION
     Dosage: 7.5MG Per day
     Route: 058
     Dates: start: 20110117, end: 20110127
  2. PREDNISOLONE [Suspect]
     Indication: COUGH
     Dosage: 3TAB In the morning
     Route: 048
     Dates: start: 20110118, end: 20110122
  3. PREVISCAN [Concomitant]
     Indication: ATRIAL FIBRILLATION
     Dates: start: 200503
  4. AVLOCARDYL [Concomitant]
  5. LOVENOX [Concomitant]
     Dosage: .5ML Twice per day
     Route: 058
     Dates: start: 20110108, end: 20110110
  6. LASILIX [Concomitant]
  7. VASTAREL [Concomitant]
  8. DIGOXINE [Concomitant]
  9. ARIMIDEX [Concomitant]
  10. IDEOS [Concomitant]
  11. BONVIVA [Concomitant]
  12. PAROXETINE [Concomitant]
  13. XANAX [Concomitant]
  14. AOTAL [Concomitant]
  15. ZOLPIDEM [Concomitant]
  16. CEFAZOLIN [Concomitant]
     Indication: ANTIBIOTIC PROPHYLAXIS
     Dosage: 2UNIT per day
     Dates: start: 201101
  17. DOLIPRANE [Concomitant]
     Dosage: 1TAB Four times per day
     Route: 048
  18. BISEPTINE [Concomitant]
  19. COMPRESSES [Concomitant]
  20. DRESSING [Concomitant]
  21. LEVOTHYROX [Concomitant]
     Dosage: 1TAB In the morning
     Route: 048
     Dates: start: 201101

REACTIONS (18)
  - Gastrointestinal haemorrhage [Fatal]
  - Haematemesis [Unknown]
  - Cardio-respiratory arrest [Fatal]
  - Cardiac arrest [Unknown]
  - Mydriasis [Unknown]
  - Pallor [Unknown]
  - Cyanosis [Unknown]
  - Bradycardia [Unknown]
  - Haemodynamic instability [Unknown]
  - Pigmentation disorder [Unknown]
  - Blood pressure immeasurable [Unknown]
  - Lactic acidosis [Unknown]
  - Hepatocellular injury [Unknown]
  - Disseminated intravascular coagulation [Unknown]
  - Off label use [Unknown]
  - Laryngeal oedema [Unknown]
  - Arrhythmia [Unknown]
  - General physical health deterioration [Unknown]
